FAERS Safety Report 17281927 (Version 1)
Quarter: 2020Q1

REPORT INFORMATION
  Report Type: Spontaneous
  Country: RU (occurrence: RU)
  Receive Date: 20200117
  Receipt Date: 20200117
  Transmission Date: 20200409
  Serious: Yes (Other)
  Sender: FDA-Public Use
  Company Number: RU-009507513-2001RUS003823

PATIENT
  Age: 3 Month
  Sex: Male

DRUGS (8)
  1. SULFAMETHOXAZOLE (+) TRIMETHOPRIM [Suspect]
     Active Substance: SULFAMETHOXAZOLE\TRIMETHOPRIM
     Dosage: 3.5 MILLILITER, 2 TIMES/ DAY (5ML-240MG)
  2. CIPROFLOXACIN. [Suspect]
     Active Substance: CIPROFLOXACIN
     Dosage: 30 MILLIGRAM, 2 TIMES/ DAY
     Route: 042
  3. MEROPENEM. [Suspect]
     Active Substance: MEROPENEM
     Dosage: 150 MILLIGRAM, 1 TIMES/ DAY
     Route: 042
  4. PIPERACILLIN AND TAZOBACTAM [Suspect]
     Active Substance: PIPERACILLIN SODIUM\TAZOBACTAM SODIUM
     Dosage: 300 MILLIGRAM, 3 TIMES/ DAY
     Route: 042
  5. ERTAPENEM SODIUM [Suspect]
     Active Substance: ERTAPENEM SODIUM
     Indication: STAPHYLOCOCCAL INFECTION
  6. AMOXICILLIN (+) CLAVULANATE POTASSIUM [Suspect]
     Active Substance: AMOXICILLIN\CLAVULANATE POTASSIUM
     Dosage: 40 MG/ KG, 2 TIMES/ DAY
  7. ERTAPENEM SODIUM [Suspect]
     Active Substance: ERTAPENEM SODIUM
     Indication: URINE ANALYSIS ABNORMAL
     Dosage: 25 MG, TWICE A DAY
     Route: 042
  8. CEFTRIAXONE. [Suspect]
     Active Substance: CEFTRIAXONE
     Dosage: 250 MILLIGRAM, 1 TIMES/ DAY
     Route: 042

REACTIONS (3)
  - Splenomegaly [Recovered/Resolved]
  - Hepatotoxicity [Recovered/Resolved]
  - Therapeutic product cross-reactivity [Unknown]
